FAERS Safety Report 26148125 (Version 1)
Quarter: 2025Q4

REPORT INFORMATION
  Report Type: Spontaneous
  Country: US (occurrence: US)
  Receive Date: 20251212
  Receipt Date: 20251212
  Transmission Date: 20260117
  Serious: Yes (Hospitalization)
  Sender: TEVA
  Company Number: US-TEVA-VS-3399700

PATIENT
  Age: 25 Year
  Sex: Male

DRUGS (1)
  1. LORAZEPAM [Suspect]
     Active Substance: LORAZEPAM
     Indication: Product used for unknown indication
     Route: 048

REACTIONS (5)
  - Withdrawal syndrome [Unknown]
  - Catatonia [Unknown]
  - Injury [Unknown]
  - Wrong technique in product usage process [Unknown]
  - Product prescribing error [Unknown]
